FAERS Safety Report 5421414-7 (Version None)
Quarter: 2007Q3

REPORT INFORMATION
  Report Type: 
  Country: None (occurrence: None)
  Receive Date: 20070821
  Receipt Date: 20070815
  Transmission Date: 20080115
  Serious: Yes (Hospitalization)
  Sender: FDA-Public Use
  Company Number: IT-ROXANE LABORATORIES, INC-2007-BP-19238RO

PATIENT
  Age: 63 Year
  Sex: Male

DRUGS (2)
  1. AZATHIOPRINE [Suspect]
     Indication: PEMPHIGUS
  2. METHYLPREDNISOLONE 16MG TAB [Suspect]
     Indication: PEMPHIGUS

REACTIONS (10)
  - ASTHENIA [None]
  - BACK PAIN [None]
  - DRUG INEFFECTIVE FOR UNAPPROVED INDICATION [None]
  - EMPYEMA [None]
  - MUSCLE ABSCESS [None]
  - MYALGIA [None]
  - NOCARDIOSIS [None]
  - PHARYNGITIS [None]
  - PYREXIA [None]
  - VERTEBRAL ABSCESS [None]
